FAERS Safety Report 16564398 (Version 1)
Quarter: 2019Q3

REPORT INFORMATION
  Report Type: Spontaneous
  Country: NL (occurrence: NL)
  Receive Date: 20190712
  Receipt Date: 20190712
  Transmission Date: 20191004
  Serious: Yes (Hospitalization)
  Sender: FDA-Public Use
  Company Number: NL-ACCORD-138072

PATIENT
  Age: 64 Year
  Sex: Male

DRUGS (16)
  1. MAGNESIUM HYDROXIDE. [Concomitant]
     Active Substance: MAGNESIUM HYDROXIDE
     Dosage: 1DD1, STRENGTH:724 MG
  2. PANTOPRAZOLE [Concomitant]
     Active Substance: PANTOPRAZOLE
     Dosage: 1DD1, STRENGTH:40 MG
  3. CLOZAPINE. [Suspect]
     Active Substance: CLOZAPINE
     Indication: SCHIZOPHRENIA
     Dosage: STRENGTH: 200 MG, 1X PER DAY 2 PIECES
     Dates: start: 2012, end: 20190606
  4. LEVOTHYROXINE. [Concomitant]
     Active Substance: LEVOTHYROXINE
     Dosage: 1DD1, STRENGTH: 50 UG
  5. SODIUM LAURYL SULFATE [Concomitant]
     Active Substance: SODIUM LAURYL SULFATE
     Dosage: ZN 1 VIA STOMA
  6. PROMETHAZINE [Concomitant]
     Active Substance: PROMETHAZINE HYDROCHLORIDE
     Dosage: STRENGTH: 25 MG, ZN 3DD1
  7. TIOTROPIUM/TIOTROPIUM BROMIDE [Concomitant]
     Dosage: 1DD1, STRENGTH: 18 UG (10 UG)
  8. FLUTICASONE/SALMETEROL [Concomitant]
     Dosage: 2DD2, 25/250 UG
  9. CYPROTERONE [Concomitant]
     Active Substance: CYPROTERONE
     Dosage: STRENGTH: 50 MG, 2DD1
  10. FENOTEROL/IPRATROPIUM [Concomitant]
     Dosage: ZN 4DD2, 50/20 UG
  11. MACROGOL/MACROGOL STEARATE [Concomitant]
     Dosage: ZN 2DD1
  12. COLECALCIFEROL [Concomitant]
     Active Substance: CHOLECALCIFEROL
     Dosage: DRINK, 100,000 IE MONTHLY
  13. CLOBETASOL [Concomitant]
     Active Substance: CLOBETASOL
     Dosage: 4 TIMES A WEEK
  14. TAMSULOSIN/TAMSULOSIN HYDROCHLORIDE [Concomitant]
     Dosage: 1DD1, STRENGTH: 0.4 MG
  15. ACETYLSALICYLIC ACID [Concomitant]
     Active Substance: ASPIRIN
     Dosage: 1DD1, STRENGTH: 80 MG
  16. SIMVASTATIN. [Concomitant]
     Active Substance: SIMVASTATIN
     Dosage: 1DD1, STRENGTH: 40 MG

REACTIONS (1)
  - Colitis ischaemic [Unknown]

NARRATIVE: CASE EVENT DATE: 20190604
